FAERS Safety Report 7819563-9 (Version None)
Quarter: 2011Q4

REPORT INFORMATION
  Report Type: 
  Country: None (occurrence: None)
  Receive Date: 20111018
  Receipt Date: 20111009
  Transmission Date: 20120403
  Serious: Yes (Hospitalization, Disabling, Other)
  Sender: FDA-Public Use
  Company Number: RO-UCBSA-017117

PATIENT
  Age: 82 Year
  Sex: Female
  Weight: 45 kg

DRUGS (8)
  1. NEUPRO [Suspect]
     Indication: PARKINSON'S DISEASE
     Route: 062
     Dates: start: 20100507, end: 20100628
  2. NEUPRO [Suspect]
     Route: 062
     Dates: start: 20100629
  3. RAWEL [Suspect]
     Indication: HYPERTENSION
     Dates: start: 20090525
  4. ENALAPRIL MALEATE [Suspect]
     Indication: HYPERTENSION
     Dates: start: 20090525
  5. SELEGOS [Concomitant]
     Indication: PARKINSON'S DISEASE
     Dates: start: 20090522, end: 20100506
  6. ISICOM [Suspect]
     Indication: PARKINSON'S DISEASE
     Dates: start: 19950516, end: 20110307
  7. VIREGYT K [Suspect]
     Indication: PARKINSON'S DISEASE
     Dates: start: 20041207, end: 20100507
  8. OXYBUTYNIN [Suspect]
     Indication: URINARY INCONTINENCE
     Dates: start: 20090611

REACTIONS (2)
  - FEMUR FRACTURE [None]
  - DIZZINESS [None]
